FAERS Safety Report 13058535 (Version 1)
Quarter: 2016Q4

REPORT INFORMATION
  Report Type: Spontaneous
  Country: US (occurrence: US)
  Receive Date: 20161223
  Receipt Date: 20161223
  Transmission Date: 20170207
  Serious: No
  Sender: FDA-Public Use
  Company Number: US-BAUSCH-BL-2015-030154

PATIENT
  Sex: Female

DRUGS (1)
  1. XENAZINE [Suspect]
     Active Substance: TETRABENAZINE
     Indication: HUNTINGTON^S DISEASE
     Dates: start: 201409

REACTIONS (5)
  - Eye contusion [Unknown]
  - Decreased appetite [Unknown]
  - Facial bones fracture [Unknown]
  - Restlessness [Unknown]
  - Fall [Unknown]

NARRATIVE: CASE EVENT DATE: 2015
